FAERS Safety Report 7689423-5 (Version None)
Quarter: 2011Q3

REPORT INFORMATION
  Report Type: 
  Country: None (occurrence: None)
  Receive Date: 20110817
  Receipt Date: 20110813
  Transmission Date: 20111222
  Serious: Yes (Other)
  Sender: FDA-Public Use
  Company Number: PHEH2011US01552

PATIENT
  Sex: Male

DRUGS (1)
  1. EXJADE [Suspect]
     Indication: ANAEMIA
     Dosage: 1000 MG, DAILY
     Route: 048
     Dates: start: 20110622, end: 20110815

REACTIONS (3)
  - DYSPNOEA [None]
  - ASTHENIA [None]
  - BLOOD TEST ABNORMAL [None]
